FAERS Safety Report 6546867-2 (Version None)
Quarter: 2010Q1

REPORT INFORMATION
  Report Type: 
  Country: None (occurrence: None)
  Receive Date: 20100119
  Receipt Date: 20100104
  Transmission Date: 20100710
  Serious: Yes (Other)
  Sender: FDA-Public Use
  Company Number: 2010S1000102

PATIENT
  Age: 24 Year
  Sex: Male
  Weight: 90.7194 kg

DRUGS (11)
  1. PHOSPHOSODA FLAVOR NOT SPECIFIED [Suspect]
     Indication: COLONOSCOPY
     Dosage: PO
     Route: 048
     Dates: start: 20050213
  2. PENTASA [Concomitant]
  3. ENTOCORT EC [Concomitant]
  4. CIPRO /00042702/ [Concomitant]
  5. PROTONIX /01263201/ [Concomitant]
  6. FIBERCON /00567702/ [Concomitant]
  7. MULTIVITAMIN /00831701/ [Concomitant]
  8. CALCIUM [Concomitant]
  9. REMICADE [Concomitant]
  10. PREDNISONE [Concomitant]
  11. FOLIC ACID [Concomitant]

REACTIONS (1)
  - RENAL FAILURE CHRONIC [None]
